FAERS Safety Report 14433108 (Version 5)
Quarter: 2018Q3

REPORT INFORMATION
  Report Type: Report from Study
  Country: NL (occurrence: NL)
  Receive Date: 20180124
  Receipt Date: 20180830
  Transmission Date: 20181010
  Serious: Yes (Life-Threatening, Hospitalization)
  Sender: FDA-Public Use
  Company Number: NL-ASTRAZENECA-2018SE09072

PATIENT
  Age: 72 Year
  Sex: Male

DRUGS (34)
  1. ACALABRUTINIB. [Suspect]
     Active Substance: ACALABRUTINIB
     Indication: CHRONIC LYMPHOCYTIC LEUKAEMIA
     Route: 048
     Dates: start: 20180119, end: 20180119
  2. XYLOMETAZOLINE [Concomitant]
     Active Substance: XYLOMETAZOLINE
     Indication: SINUSITIS
     Dosage: 1MG/ML FOUR TIMES A DAY
     Dates: start: 20171120
  3. HYDROXOCOBALAMINE [Concomitant]
     Active Substance: HYDROXOCOBALAMIN
     Indication: VITAMIN B12 DEFICIENCY
     Dates: start: 20170124, end: 20170216
  4. PARACETAMOL [Concomitant]
     Active Substance: ACETAMINOPHEN
     Indication: SINUSITIS
     Dosage: AS REQUIRED
     Dates: start: 20160628
  5. PARACETAMOL [Concomitant]
     Active Substance: ACETAMINOPHEN
     Indication: PAIN
     Dates: start: 20171115
  6. OXYCODONE [Concomitant]
     Active Substance: OXYCODONE
     Indication: DIARRHOEA INFECTIOUS
     Dosage: 5.0MG AS REQUIRED
     Dates: start: 20171228, end: 20180119
  7. OXYCODONE [Concomitant]
     Active Substance: OXYCODONE
     Indication: DIARRHOEA INFECTIOUS
     Dosage: 5.0MG AS REQUIRED
     Dates: start: 20180128, end: 20180206
  8. PARACETAMOL [Concomitant]
     Active Substance: ACETAMINOPHEN
     Indication: PAIN
     Dosage: AS REQUIRED
     Dates: start: 20160628
  9. PARACETAMOL [Concomitant]
     Active Substance: ACETAMINOPHEN
     Indication: PAIN
     Dates: start: 20170314, end: 20170315
  10. OXYNORM [Concomitant]
     Active Substance: OXYCODONE HYDROCHLORIDE
     Indication: HEADACHE
     Dosage: 10.0MG AS REQUIRED
     Dates: start: 20161001, end: 20161102
  11. ACALABRUTINIB. [Suspect]
     Active Substance: ACALABRUTINIB
     Indication: CHRONIC LYMPHOCYTIC LEUKAEMIA
     Route: 048
     Dates: start: 20160719, end: 20170109
  12. ACALABRUTINIB. [Suspect]
     Active Substance: ACALABRUTINIB
     Indication: CHRONIC LYMPHOCYTIC LEUKAEMIA
     Route: 048
     Dates: start: 20170110, end: 20170110
  13. ACALABRUTINIB. [Suspect]
     Active Substance: ACALABRUTINIB
     Indication: CHRONIC LYMPHOCYTIC LEUKAEMIA
     Route: 048
     Dates: start: 20171127, end: 20180118
  14. PARACETAMOL [Concomitant]
     Active Substance: ACETAMINOPHEN
     Indication: SINUSITIS
     Dates: start: 20170314, end: 20170315
  15. ACALABRUTINIB. [Suspect]
     Active Substance: ACALABRUTINIB
     Indication: CHRONIC LYMPHOCYTIC LEUKAEMIA
     Route: 048
     Dates: start: 20170904, end: 20171127
  16. OXYCODONE [Concomitant]
     Active Substance: OXYCODONE
     Indication: HEADACHE
     Dosage: 5.0MG AS REQUIRED
     Dates: start: 20180128, end: 20180206
  17. LOPERAMIDE [Concomitant]
     Active Substance: LOPERAMIDE
     Indication: DIARRHOEA
     Dates: start: 20161216
  18. FOLIC ACID. [Concomitant]
     Active Substance: FOLIC ACID
     Indication: FOLATE DEFICIENCY
     Dates: start: 20170112
  19. OXYCODONE [Concomitant]
     Active Substance: OXYCODONE
     Indication: HEADACHE
     Dosage: 5.0MG AS REQUIRED
     Dates: start: 20171228, end: 20180119
  20. PYRALVEX [Concomitant]
     Active Substance: RHUBARB\SALICYLIC ACID
     Indication: MOUTH ULCERATION
     Dosage: AS REQUIRED
     Dates: start: 20160804
  21. OXYCODONE [Concomitant]
     Active Substance: OXYCODONE
     Indication: DIARRHOEA INFECTIOUS
     Dosage: 5.0MG AS REQUIRED
     Dates: start: 20170110, end: 20170110
  22. ACALABRUTINIB. [Suspect]
     Active Substance: ACALABRUTINIB
     Indication: CHRONIC LYMPHOCYTIC LEUKAEMIA
     Route: 048
     Dates: start: 20170613, end: 20170904
  23. OXYCODONE [Concomitant]
     Active Substance: OXYCODONE
     Indication: HEADACHE
     Dosage: 5.0MG AS REQUIRED
     Dates: start: 20170110, end: 20170110
  24. HYDROXOCOBALAMINE [Concomitant]
     Active Substance: HYDROXOCOBALAMIN
     Indication: VITAMIN B12 DEFICIENCY
     Dates: start: 20170112, end: 20170124
  25. HYDROXOCOBALAMINE [Concomitant]
     Active Substance: HYDROXOCOBALAMIN
     Indication: VITAMIN B12 DEFICIENCY
     Dates: start: 20170216
  26. IBUPROFEN. [Concomitant]
     Active Substance: IBUPROFEN
     Indication: HEADACHE
     Dates: start: 20171115, end: 20180116
  27. ACALABRUTINIB. [Suspect]
     Active Substance: ACALABRUTINIB
     Indication: CHRONIC LYMPHOCYTIC LEUKAEMIA
     Route: 048
     Dates: start: 20170116, end: 20170612
  28. OXYCODONE [Concomitant]
     Active Substance: OXYCODONE
     Indication: HEADACHE
     Dosage: 5.0MG AS REQUIRED
     Dates: start: 20180126, end: 20180219
  29. OXYCODONE [Concomitant]
     Active Substance: OXYCODONE
     Indication: DIARRHOEA INFECTIOUS
     Dosage: 5.0MG AS REQUIRED
     Dates: start: 20180126, end: 20180219
  30. PARACETAMOL [Concomitant]
     Active Substance: ACETAMINOPHEN
     Indication: SINUSITIS
     Dates: start: 20171115
  31. MACROGOL [Concomitant]
     Active Substance: POLYETHYLENE GLYCOLS
     Indication: PROPHYLAXIS
     Dosage: 13.7MG AS REQUIRED
     Dates: start: 20160712, end: 20160714
  32. MACROGOL [Concomitant]
     Active Substance: POLYETHYLENE GLYCOLS
     Indication: PROPHYLAXIS
     Dosage: 1 SACHET, AS REQUIRED AS REQUIRED
     Dates: start: 20171228, end: 20180213
  33. MACROGOL [Concomitant]
     Active Substance: POLYETHYLENE GLYCOLS
     Indication: PROPHYLAXIS
     Dosage: 2 SACHET, DAILY AS REQUIRED
     Dates: start: 20180213
  34. OXYNORM [Concomitant]
     Active Substance: OXYCODONE HYDROCHLORIDE
     Indication: HEADACHE
     Dosage: 5.0MG AS REQUIRED
     Dates: start: 20171228, end: 20180116

REACTIONS (1)
  - Brain abscess [Recovered/Resolved]

NARRATIVE: CASE EVENT DATE: 20180116
